FAERS Safety Report 9349246 (Version 4)
Quarter: 2013Q3

REPORT INFORMATION
  Report Type: Spontaneous
  Country: JP (occurrence: JP)
  Receive Date: 20130614
  Receipt Date: 20130902
  Transmission Date: 20140515
  Serious: Yes (Disabling, Other)
  Sender: FDA-Public Use
  Company Number: JP-BRISTOL-MYERS SQUIBB COMPANY-19004670

PATIENT
  Age: 65 Year
  Sex: Female
  Weight: 54 kg

DRUGS (13)
  1. TAXOL INJ [Suspect]
     Indication: BREAST CANCER STAGE IV
     Dosage: LAST DOSE 28MY13?60MG/WK 9AUG10-1AUG11 39CYCLES?3APR12-NV13 8CYCLES
     Route: 041
     Dates: start: 20130403
  2. HERCEPTIN [Suspect]
     Indication: BREAST CANCER STAGE IV
     Dates: start: 20100607, end: 20100802
  3. AVASTIN [Suspect]
     Indication: BREAST CANCER STAGE IV
     Dosage: INJ?LAST DOSE 28MY13
     Route: 041
     Dates: start: 20120403, end: 20130528
  4. SHAKUYAKU-KANZO-TO [Concomitant]
     Route: 048
  5. GOSHAJINKIGAN [Concomitant]
     Route: 048
  6. METHYCOBAL [Concomitant]
  7. PYDOXAL [Concomitant]
  8. RIZE [Concomitant]
     Route: 048
  9. ONON [Concomitant]
     Route: 048
  10. ALLELOCK [Concomitant]
     Dosage: TABS
     Route: 048
  11. LASIX [Concomitant]
  12. MIYA-BM [Concomitant]
     Route: 048
  13. SELBEX [Concomitant]
     Route: 048

REACTIONS (3)
  - Macular oedema [Unknown]
  - Malignant neoplasm progression [Unknown]
  - Visual acuity reduced [Not Recovered/Not Resolved]
